FAERS Safety Report 9630478 (Version 2)
Quarter: 2013Q4

REPORT INFORMATION
  Report Type: Spontaneous
  Country: GR (occurrence: GR)
  Receive Date: 20131018
  Receipt Date: 20131121
  Transmission Date: 20140711
  Serious: Yes (Other)
  Sender: FDA-Public Use
  Company Number: GR-AMGEN-GRCSP2013072613

PATIENT
  Sex: Female

DRUGS (2)
  1. FLUDEX                             /00340101/ [Concomitant]
  2. PROLIA [Suspect]
     Indication: OSTEOPOROSIS
     Dosage: 60 MG, Q6MO
     Route: 065

REACTIONS (4)
  - Meningioma [Recovered/Resolved]
  - Pruritus [Recovered/Resolved]
  - Eczema [Unknown]
  - Erythema [Recovered/Resolved]
